FAERS Safety Report 4551649-7 (Version None)
Quarter: 2005Q1

REPORT INFORMATION
  Report Type: 
  Country: None (occurrence: None)
  Receive Date: 20050111
  Receipt Date: 20041230
  Transmission Date: 20050727
  Serious: Yes (Hospitalization, Disabling)
  Sender: FDA-Public Use
  Company Number: 200410804

PATIENT
  Age: 57 Year
  Sex: Female
  Weight: 43.0917 kg

DRUGS (11)
  1. BOTOX PURIFIED NEUROTOXIN COMPLEX [Suspect]
     Indication: MIGRAINE
     Dosage: 100 UNITS PRN IM
     Route: 030
     Dates: start: 20040922
  2. FIORICET [Concomitant]
  3. TORADOL [Concomitant]
  4. DEMEROL [Concomitant]
  5. DEPACON [Concomitant]
  6. DEPAKOTE [Concomitant]
  7. PHENOBARBITAL [Concomitant]
  8. ALEVE [Concomitant]
  9. VERAPAMIL [Concomitant]
  10. MOLD YEAST DUST RLEASE [Concomitant]
  11. OXYCODONE HCL [Concomitant]

REACTIONS (7)
  - BLOOD AMYLASE INCREASED [None]
  - DRUG INEFFECTIVE [None]
  - HEADACHE [None]
  - IMPAIRED WORK ABILITY [None]
  - MIGRAINE [None]
  - MUSCULAR WEAKNESS [None]
  - POST PROCEDURAL COMPLICATION [None]
